FAERS Safety Report 4701312-4 (Version None)
Quarter: 2005Q2

REPORT INFORMATION
  Report Type: 
  Country: None (occurrence: None)
  Receive Date: 20050628
  Receipt Date: 20050608
  Transmission Date: 20051028
  Serious: Yes (Other)
  Sender: FDA-Public Use
  Company Number: PHBS2005JP08199

PATIENT
  Age: 71 Year
  Sex: Male

DRUGS (4)
  1. PENTAZOCINE LACTATE [Suspect]
     Indication: BACK PAIN
     Route: 030
  2. SULPIRIDE [Concomitant]
     Indication: BACK PAIN
  3. VOLTAREN [Suspect]
     Indication: BACK PAIN
     Route: 054
  4. IMIPRAMINE [Suspect]
     Indication: PAIN

REACTIONS (3)
  - DRUG DEPENDENCE [None]
  - IRRITABILITY [None]
  - RESTLESSNESS [None]
